FAERS Safety Report 23816430 (Version 1)
Quarter: 2024Q2

REPORT INFORMATION
  Report Type: Spontaneous
  Country: TW (occurrence: TW)
  Receive Date: 20240503
  Receipt Date: 20240503
  Transmission Date: 20240716
  Serious: Yes (Hospitalization, Other)
  Sender: FDA-Public Use
  Company Number: TW-002147023-NVSC2024TW090127

PATIENT

DRUGS (2)
  1. RUXOLITINIB [Suspect]
     Active Substance: RUXOLITINIB
     Indication: Primary myelofibrosis
     Dosage: 40 MG, QD
     Route: 065
  2. RUXOLITINIB [Suspect]
     Active Substance: RUXOLITINIB
     Dosage: TAPERED TO 20 MG PER DAY
     Route: 065

REACTIONS (2)
  - Tuberculosis [Recovered/Resolved]
  - Psoas abscess [Recovered/Resolved]
